FAERS Safety Report 5064407-4 (Version None)
Quarter: 2006Q3

REPORT INFORMATION
  Report Type: 
  Country: None (occurrence: None)
  Receive Date: 20060728
  Receipt Date: 19990826
  Transmission Date: 20061208
  Serious: Yes (Hospitalization, Other)
  Sender: FDA-Public Use
  Company Number: DE-BRISTOL-MYERS SQUIBB COMPANY-13448311

PATIENT
  Sex: Female

DRUGS (12)
  1. TAXOL [Suspect]
     Indication: BREAST CANCER
     Dosage: 6 INFUSIONS
     Dates: start: 19981201, end: 19990201
  2. TAMOXIFEN [Suspect]
     Indication: BREAST CANCER
     Dates: start: 19911101
  3. EPIRUBICIN [Suspect]
     Indication: BREAST CANCER
     Dates: start: 19981109, end: 19981109
  4. GEMCITABINE [Suspect]
     Indication: BREAST CANCER
     Dosage: 2 INFUSIONS (50% AND 75% RESPECTIVELY)
     Dates: start: 19990301, end: 19990301
  5. NOVALGIN [Concomitant]
     Dosage: 20-20-20 WHEN NEEDED
  6. LEVOTHYROXINE SODIUM [Concomitant]
     Dosage: 1-0-0
  7. SAROTEN [Concomitant]
     Dosage: SAROTEN RET. 0-0-1; INCREASE IF NECESSARY
  8. BELOC [Concomitant]
  9. LASIX [Concomitant]
     Dosage: 1-0-0 TWICE A WEEK
  10. PYRIDOXINE HCL [Concomitant]
     Dosage: B 6 VICOTRAT 1-1-1
  11. BONDRONAT [Concomitant]
     Route: 042
     Dates: start: 19990426
  12. CARBIMAZOLE [Concomitant]
     Indication: THYROIDECTOMY
     Dates: start: 19980801, end: 19990801

REACTIONS (24)
  - ANAEMIA [None]
  - BACK PAIN [None]
  - BONE MARROW FAILURE [None]
  - BONE NEOPLASM MALIGNANT [None]
  - CHEST PAIN [None]
  - DEPRESSION [None]
  - DYSPNOEA [None]
  - FATIGUE [None]
  - GENERAL PHYSICAL HEALTH DETERIORATION [None]
  - GOITRE [None]
  - HEPATIC STEATOSIS [None]
  - HYPOAESTHESIA ORAL [None]
  - HYPOTHYROIDISM [None]
  - METASTASES TO BONE [None]
  - OPTIC NEUROPATHY [None]
  - OSTEOCHONDROSIS [None]
  - OSTEOPOROSIS [None]
  - PARAESTHESIA ORAL [None]
  - PERIPHERAL SENSORY NEUROPATHY [None]
  - RASH [None]
  - REFLUX OESOPHAGITIS [None]
  - SENSORY LOSS [None]
  - THROMBOCYTOPENIA [None]
  - THYROIDECTOMY [None]
